FAERS Safety Report 5804661-1 (Version None)
Quarter: 2008Q3

REPORT INFORMATION
  Report Type: 
  Country: None (occurrence: None)
  Receive Date: 20080709
  Receipt Date: 20080703
  Transmission Date: 20090109
  Serious: Yes (Hospitalization)
  Sender: FDA-Public Use
  Company Number: JP-EISAI MEDICAL RESEARCH-E2090-00500-SPO-JP

PATIENT
  Age: 7 Year
  Sex: Female

DRUGS (3)
  1. EXCEGRAN [Suspect]
     Indication: CONVULSION
     Dosage: UNKNOWN
     Route: 048
  2. FLUTICASONE PROPIONATE [Concomitant]
     Indication: ASTHMA
  3. AMOXICILLIN [Concomitant]
     Indication: STREPTOCOCCAL INFECTION

REACTIONS (1)
  - DRUG RASH WITH EOSINOPHILIA AND SYSTEMIC SYMPTOMS [None]
